FAERS Safety Report 15530264 (Version 7)
Quarter: 2019Q4

REPORT INFORMATION
  Report Type: Spontaneous
  Country: US (occurrence: US)
  Receive Date: 20181018
  Receipt Date: 20191011
  Transmission Date: 20200122
  Serious: Yes (Hospitalization, Other)
  Sender: FDA-Public Use
  Company Number: US-PFIZER INC-2018409913

PATIENT
  Age: 69 Year
  Sex: Female
  Weight: 107 kg

DRUGS (5)
  1. LYRICA [Suspect]
     Active Substance: PREGABALIN
     Dosage: UNK
     Dates: start: 2018
  2. LYRICA [Suspect]
     Active Substance: PREGABALIN
     Indication: NEUROPATHY PERIPHERAL
     Dosage: UNK
     Route: 048
     Dates: start: 2014
  3. LYRICA [Suspect]
     Active Substance: PREGABALIN
     Indication: PAIN
     Dosage: 150 MG, 2X/DAY
     Route: 048
     Dates: end: 201812
  4. LYRICA [Suspect]
     Active Substance: PREGABALIN
     Dosage: 150 MG, 2X/DAY
     Route: 048
     Dates: start: 2018, end: 2018
  5. LYRICA [Suspect]
     Active Substance: PREGABALIN
     Dosage: 125 MG, UNK
     Dates: start: 2018, end: 2018

REACTIONS (7)
  - Nausea [Unknown]
  - Speech disorder [Unknown]
  - Cerebrovascular accident [Unknown]
  - Gastric disorder [Not Recovered/Not Resolved]
  - Feeling abnormal [Unknown]
  - Therapeutic product effect incomplete [Unknown]
  - Vomiting [Unknown]

NARRATIVE: CASE EVENT DATE: 20180218
